FAERS Safety Report 8363033-9 (Version None)
Quarter: 2012Q2

REPORT INFORMATION
  Report Type: 
  Country: None (occurrence: None)
  Receive Date: 20120516
  Receipt Date: 20120508
  Transmission Date: 20120825
  Serious: Yes (Hospitalization, Other)
  Sender: FDA-Public Use
  Company Number: US-UCBSA-057036

PATIENT
  Age: 70 Year
  Sex: Female
  Weight: 70.31 kg

DRUGS (7)
  1. POTASSIUM CHLORIDE [Concomitant]
     Indication: MINERAL SUPPLEMENTATION
     Route: 048
  2. ATENOLOL [Concomitant]
     Indication: HYPERTENSION
     Route: 048
  3. VIMPAT [Suspect]
     Route: 048
     Dates: start: 20110701, end: 20110101
  4. LAMICTAL [Concomitant]
     Indication: CONVULSION
     Route: 048
  5. LAMICTAL [Concomitant]
     Route: 048
  6. THEOPHYLLINE [Concomitant]
     Indication: ASTHMA
     Route: 048
  7. VIMPAT [Suspect]
     Indication: CONVULSION
     Route: 048
     Dates: start: 20110801, end: 20110822

REACTIONS (5)
  - GRAND MAL CONVULSION [None]
  - VISION BLURRED [None]
  - HEADACHE [None]
  - DEPRESSION [None]
  - ABDOMINAL DISCOMFORT [None]
